FAERS Safety Report 11315943 (Version 1)
Quarter: 2015Q3

REPORT INFORMATION
  Report Type: Spontaneous
  Country: IE (occurrence: None)
  Receive Date: 20150724
  Receipt Date: 20150724
  Transmission Date: 20151125
  Serious: Yes (Death)
  Sender: FDA-Public Use
  Company Number: 2015IL0409

PATIENT
  Sex: Male

DRUGS (3)
  1. DEXAMETHASONE. [Concomitant]
     Active Substance: DEXAMETHASONE
  2. CYCLOSPORINE (CICLOSPORIN) [Concomitant]
     Active Substance: CYCLOSPORINE
  3. KINERET [Suspect]
     Active Substance: ANAKINRA
     Indication: HISTIOCYTOSIS HAEMATOPHAGIC
     Route: 058
     Dates: start: 20150701, end: 20150708

REACTIONS (4)
  - Disease progression [None]
  - Hepatic failure [None]
  - No therapeutic response [None]
  - Histiocytosis haematophagic [None]
